FAERS Safety Report 8153254-2 (Version None)
Quarter: 2012Q1

REPORT INFORMATION
  Report Type: 
  Country: None (occurrence: None)
  Receive Date: 20120221
  Receipt Date: 20120214
  Transmission Date: 20120608
  Serious: Yes (Other)
  Sender: FDA-Public Use
  Company Number: CA-B.I. PHARMACEUTICALS,INC./RIDGEFIELD-2012-CN-00313CN

PATIENT
  Age: 67 Year
  Sex: Female

DRUGS (9)
  1. ELOCON [Concomitant]
     Route: 061
  2. METOPROLOL TARTRATE [Concomitant]
     Route: 048
  3. COZAAR [Concomitant]
     Route: 048
  4. PRADAXA [Suspect]
     Dosage: 300 MG
     Route: 048
  5. SINGULAIR [Concomitant]
     Route: 048
  6. VIADERM KC CRM [Concomitant]
     Route: 061
  7. SANDOZ DORZOLAMIDE/TIMOLOL [Suspect]
     Dosage: 4 RT
  8. ARTHROTEC [Concomitant]
     Route: 048
  9. TRAVATAN Z [Concomitant]

REACTIONS (1)
  - INTRAOCULAR PRESSURE INCREASED [None]
